FAERS Safety Report 11528655 (Version 3)
Quarter: 2015Q4

REPORT INFORMATION
  Report Type: Report from Study
  Country: KR (occurrence: KR)
  Receive Date: 20150921
  Receipt Date: 20151111
  Transmission Date: 20160304
  Serious: No
  Sender: FDA-Public Use
  Company Number: PHHY2015KR113248

PATIENT
  Age: 69 Year
  Sex: Female

DRUGS (20)
  1. ALMARL [Concomitant]
     Active Substance: AROTINOLOL HYDROCHLORIDE
     Indication: TREMOR
     Dosage: 10 MG, UNK
     Route: 048
     Dates: start: 20150303
  2. CRESTOR [Concomitant]
     Active Substance: ROSUVASTATIN CALCIUM
     Indication: HYPERLIPIDAEMIA
     Dosage: 1 DF, UNK
     Route: 048
     Dates: start: 20150217
  3. NOVONORM [Concomitant]
     Active Substance: REPAGLINIDE
     Indication: DIABETES MELLITUS
     Dosage: 4 MG, UNK
     Route: 048
     Dates: start: 20150203
  4. DICAMAX [Concomitant]
     Indication: OSTEOPOROSIS
     Dosage: 1000 MG, UNK
     Route: 048
     Dates: start: 20150526
  5. LASIX [Concomitant]
     Active Substance: FUROSEMIDE
     Indication: PLEURAL EFFUSION
     Dosage: 80 MG, UNK
     Route: 048
     Dates: start: 20150417, end: 20150419
  6. LASIX [Concomitant]
     Active Substance: FUROSEMIDE
     Dosage: 120 MG, UNK
     Route: 048
     Dates: start: 20150429, end: 20150507
  7. MUCOPECT [Concomitant]
     Indication: UPPER RESPIRATORY TRACT INFECTION
     Dosage: 90 MG, UNK
     Route: 048
     Dates: start: 20150317, end: 20150331
  8. LEXAPRO [Concomitant]
     Active Substance: ESCITALOPRAM OXALATE
     Indication: DEPRESSION
     Dosage: 10 MG, UNK
     Route: 048
     Dates: start: 20150417
  9. KALIMATE [Concomitant]
     Active Substance: CALCIUM POLYSTYRENE SULFONATE
     Indication: HYPERKALAEMIA
     Dosage: 5 G, UNK
     Route: 048
     Dates: start: 20150412, end: 20150416
  10. SOLONDO [Concomitant]
     Active Substance: PREDNISOLONE
     Indication: PLEURAL EFFUSION
     Dosage: 20 MG, UNK
     Route: 048
     Dates: start: 20130131
  11. RESPILENE [Concomitant]
     Indication: UPPER RESPIRATORY TRACT INFECTION
     Dosage: 112.5 MG, UNK
     Route: 048
     Dates: start: 20150317, end: 20150414
  12. FOSAMAX [Concomitant]
     Active Substance: ALENDRONATE SODIUM
     Indication: OSTEOPOROSIS
     Dosage: 70 MG, QW
     Route: 048
     Dates: start: 20150123
  13. TASIGNA [Suspect]
     Active Substance: NILOTINIB
     Dosage: 600 MG, QD
     Route: 048
     Dates: start: 20150623
  14. LANTUS [Concomitant]
     Active Substance: INSULIN GLARGINE
     Indication: DIABETES MELLITUS
     Dosage: 3 ML, UNK
     Route: 058
     Dates: start: 20150417
  15. MEIACT [Concomitant]
     Active Substance: CEFDITOREN PIVOXIL
     Indication: UPPER RESPIRATORY TRACT INFECTION
     Dosage: 300 MG, UNK
     Route: 048
     Dates: start: 20150317, end: 20150331
  16. LASIX [Concomitant]
     Active Substance: FUROSEMIDE
     Dosage: 80 MG, UNK
     Route: 048
     Dates: start: 20150508
  17. UCERAX [Concomitant]
     Indication: RASH
     Dosage: 30 MG, UNK
     Route: 048
     Dates: start: 20150303, end: 20150310
  18. TASIGNA [Suspect]
     Active Substance: NILOTINIB
     Indication: CHRONIC MYELOID LEUKAEMIA
     Dosage: 600 MG, QD
     Route: 048
     Dates: start: 20150210, end: 20150508
  19. APIDRA [Concomitant]
     Active Substance: INSULIN GLULISINE
     Indication: DIABETES MELLITUS
     Dosage: 3 ML, UNK
     Route: 058
     Dates: start: 20150417
  20. LASIX [Concomitant]
     Active Substance: FUROSEMIDE
     Dosage: 20 MG, UNK
     Route: 042
     Dates: start: 20150622, end: 20150627

REACTIONS (1)
  - Constipation [Recovered/Resolved]

NARRATIVE: CASE EVENT DATE: 20150217
